FAERS Safety Report 9495332 (Version 2)
Quarter: 2013Q3

REPORT INFORMATION
  Report Type: Spontaneous
  Country: US (occurrence: US)
  Receive Date: 20130903
  Receipt Date: 20130911
  Transmission Date: 20140515
  Serious: Yes (Death)
  Sender: FDA-Public Use
  Company Number: US-GLAXOSMITHKLINE-A1039384A

PATIENT
  Age: 60 Year
  Sex: Female
  Weight: 48.6 kg

DRUGS (2)
  1. FLOLAN [Suspect]
     Indication: COR PULMONALE CHRONIC
     Dosage: 24NGKM CONTINUOUS
     Route: 042
     Dates: start: 20130801
  2. ADCIRCA [Concomitant]

REACTIONS (7)
  - Death [Fatal]
  - Oxygen saturation decreased [Unknown]
  - Asthenia [Unknown]
  - Retching [Unknown]
  - Malaise [Unknown]
  - Pulmonary arterial hypertension [Unknown]
  - Scleroderma [Unknown]
